FAERS Safety Report 5390407-0 (Version None)
Quarter: 2007Q3

REPORT INFORMATION
  Report Type: 
  Country: None (occurrence: None)
  Receive Date: 20070718
  Receipt Date: 20060905
  Transmission Date: 20080115
  Serious: No
  Sender: FDA-Public Use
  Company Number: US-KINGPHARMUSA00001-K200601130

PATIENT

DRUGS (2)
  1. LEVOXYL [Suspect]
     Indication: HYPOTHYROIDISM
     Dosage: 100 MCG, QD
     Route: 048
     Dates: start: 20060701
  2. ANABOLIC STEROIDS [Concomitant]
     Indication: ALOPECIA
     Dosage: UNK, QMON

REACTIONS (6)
  - BLOOD PRESSURE INCREASED [None]
  - FEELING HOT [None]
  - HUNGER [None]
  - INSOMNIA [None]
  - NIGHT SWEATS [None]
  - THIRST [None]
